FAERS Safety Report 16134035 (Version 1)
Quarter: 2019Q1

REPORT INFORMATION
  Report Type: Spontaneous
  Country: GB (occurrence: GB)
  Receive Date: 20190329
  Receipt Date: 20190329
  Transmission Date: 20190418
  Serious: Yes (Other)
  Sender: FDA-Public Use
  Company Number: GB-TEVA-2019-GB-1031087

PATIENT
  Age: 50 Year
  Sex: Female
  Weight: 53.52 kg

DRUGS (5)
  1. MYCOPHENOLATE MOFETIL. [Concomitant]
     Active Substance: MYCOPHENOLATE MOFETIL
  2. ACICLOVIR [Concomitant]
     Active Substance: ACYCLOVIR
  3. LANSOPRAZOLE. [Suspect]
     Active Substance: LANSOPRAZOLE
     Indication: ABDOMINAL DISCOMFORT
     Route: 048
     Dates: start: 20190302, end: 20190302
  4. PREDNISOLONE ACETATE. [Concomitant]
     Active Substance: PREDNISOLONE ACETATE
  5. VITAMIN D [Concomitant]
     Active Substance: CHOLECALCIFEROL

REACTIONS (7)
  - Gingival erythema [Not Recovered/Not Resolved]
  - Mouth swelling [Recovering/Resolving]
  - Visual impairment [Unknown]
  - Facial pain [Recovering/Resolving]
  - Swelling face [Recovering/Resolving]
  - Rash macular [Recovering/Resolving]
  - Gingival pain [Recovering/Resolving]

NARRATIVE: CASE EVENT DATE: 20190302
